FAERS Safety Report 14322801 (Version 1)
Quarter: 2017Q4

REPORT INFORMATION
  Report Type: Report from Study
  Country: None (occurrence: US)
  Receive Date: 20171225
  Receipt Date: 20171225
  Transmission Date: 20180321
  Serious: Yes (Hospitalization, Other)
  Sender: FDA-Public Use
  Company Number: US-ABBVIE-17K-163-2177480-00

PATIENT
  Sex: Male

DRUGS (7)
  1. HYDROXYCHLOROQUINE [Concomitant]
     Active Substance: HYDROXYCHLOROQUINE
     Indication: PSORIATIC ARTHROPATHY
  2. HUMIRA [Suspect]
     Active Substance: ADALIMUMAB
     Route: 058
     Dates: start: 20171015, end: 20171015
  3. VITAMIN B12 [Concomitant]
     Active Substance: CYANOCOBALAMIN
     Indication: PRODUCT USED FOR UNKNOWN INDICATION
  4. FISH OIL [Concomitant]
     Active Substance: FISH OIL
     Indication: PRODUCT USED FOR UNKNOWN INDICATION
  5. COSENTYX [Concomitant]
     Active Substance: SECUKINUMAB
     Indication: PRODUCT USED FOR UNKNOWN INDICATION
  6. HUMIRA [Suspect]
     Active Substance: ADALIMUMAB
     Indication: PSORIATIC ARTHROPATHY
     Route: 058
     Dates: start: 20160115, end: 201706
  7. METHOTREXATE. [Concomitant]
     Active Substance: METHOTREXATE
     Indication: PSORIATIC ARTHROPATHY

REACTIONS (11)
  - Haematuria [Recovered/Resolved]
  - DNA antibody positive [Not Recovered/Not Resolved]
  - Psoriasis [Recovered/Resolved]
  - Pyelonephritis [Recovered/Resolved]
  - Infection susceptibility increased [Unknown]
  - Systemic lupus erythematosus [Not Recovered/Not Resolved]
  - Prostatitis Escherichia coli [Recovered/Resolved]
  - Fatigue [Not Recovered/Not Resolved]
  - Proteinuria [Recovered/Resolved]
  - Antinuclear antibody increased [Not Recovered/Not Resolved]
  - Prostatic obstruction [Recovered/Resolved]

NARRATIVE: CASE EVENT DATE: 2017
